FAERS Safety Report 9975160 (Version 1)
Quarter: 2014Q1

REPORT INFORMATION
  Report Type: Report from Study
  Country: US (occurrence: US)
  Receive Date: 20140306
  Receipt Date: 20140306
  Transmission Date: 20141002
  Serious: No
  Sender: FDA-Public Use
  Company Number: US-ABBVIE-13P-163-1161059-00

PATIENT
  Sex: Male

DRUGS (8)
  1. HUMIRA [Suspect]
     Indication: CROHN^S DISEASE
     Dates: start: 2011, end: 201211
  2. HUMIRA [Suspect]
     Dates: start: 2013
  3. NEXIUM [Concomitant]
     Indication: PRODUCT USED FOR UNKNOWN INDICATION
  4. ALLOPURINOL [Concomitant]
     Indication: PRODUCT USED FOR UNKNOWN INDICATION
  5. ALLEGRA [Concomitant]
     Indication: SEASONAL ALLERGY
     Dosage: AS NEEDED
  6. VERAMIST [Concomitant]
     Indication: SEASONAL ALLERGY
     Dosage: ONCE TO TWICE DAILY, AS NEEDED
  7. REGLAN [Concomitant]
     Indication: NAUSEA
  8. REGLAN [Concomitant]
     Indication: VOMITING

REACTIONS (5)
  - Drug ineffective [Recovering/Resolving]
  - Abdominal pain [Recovering/Resolving]
  - Nausea [Recovering/Resolving]
  - Vomiting [Recovering/Resolving]
  - Pain [Recovering/Resolving]
